FAERS Safety Report 6473677-7 (Version None)
Quarter: 2009Q4

REPORT INFORMATION
  Report Type: 
  Country: None (occurrence: None)
  Receive Date: 20091204
  Receipt Date: 20091130
  Transmission Date: 20100525
  Serious: Yes (Death, Hospitalization)
  Sender: FDA-Public Use
  Company Number: US-JNJFOC-20091200531

PATIENT
  Sex: Female
  Weight: 56 kg

DRUGS (20)
  1. DOXIL [Suspect]
     Indication: MULTIPLE MYELOMA
     Route: 042
     Dates: start: 20090720, end: 20090817
  2. PEGASPARGASE [Suspect]
     Indication: MULTIPLE MYELOMA
     Route: 042
     Dates: start: 20090720, end: 20090817
  3. DECADRON [Suspect]
     Indication: MULTIPLE MYELOMA
     Route: 048
     Dates: start: 20090720, end: 20090817
  4. CIPROFLOXACIN [Concomitant]
     Route: 065
  5. FEXOFENADINE [Concomitant]
     Route: 065
  6. GABAPENTIN [Concomitant]
     Route: 065
  7. LORAZEPAM [Concomitant]
     Route: 065
  8. MAGNESIUM HYDROXIDE TAB [Concomitant]
     Route: 065
  9. METFORMIN HCL [Concomitant]
     Route: 065
  10. M.V.I. [Concomitant]
     Route: 065
  11. NYSTATIN [Concomitant]
     Route: 065
  12. LOVAZA [Concomitant]
     Route: 065
  13. PANTOPRAZOLE [Concomitant]
     Route: 065
  14. PROCHLORPERAZINE [Concomitant]
     Route: 065
  15. SENNA [Concomitant]
     Route: 065
  16. SILVER SULFADIAZINE [Concomitant]
     Route: 065
  17. FLUCONAZOLE [Concomitant]
     Route: 065
  18. ATENOLOL [Concomitant]
     Route: 065
  19. LEVAQUIN [Concomitant]
     Route: 065
  20. DOCUSATE [Concomitant]
     Route: 065

REACTIONS (6)
  - CHOLECYSTITIS [None]
  - FAILURE TO THRIVE [None]
  - MUCOSAL INFLAMMATION [None]
  - MULTIPLE MYELOMA [None]
  - PSEUDOMONAL BACTERAEMIA [None]
  - PULMONARY EMBOLISM [None]
